FAERS Safety Report 17053365 (Version 5)
Quarter: 2025Q2

REPORT INFORMATION
  Report Type: Spontaneous
  Country: US (occurrence: US)
  Receive Date: 20191120
  Receipt Date: 20250514
  Transmission Date: 20250717
  Serious: Yes (Disabling)
  Sender: JOHNSON AND JOHNSON
  Company Number: US-JNJFOC-20191126093

PATIENT
  Age: 31 Year
  Sex: Male
  Weight: 89.36 kg

DRUGS (2)
  1. RISPERDAL [Suspect]
     Active Substance: RISPERIDONE
     Indication: Autism spectrum disorder
     Route: 048
     Dates: start: 1998, end: 20200212
  2. RISPERDAL [Suspect]
     Active Substance: RISPERIDONE
     Dosage: TAKING OVER 20-YEARS
     Route: 048

REACTIONS (4)
  - Gynaecomastia [Not Recovered/Not Resolved]
  - Nasal congestion [Not Recovered/Not Resolved]
  - Product use issue [Unknown]
  - Off label use [Unknown]
